FAERS Safety Report 7603108-2 (Version None)
Quarter: 2011Q3

REPORT INFORMATION
  Report Type: 
  Country: None (occurrence: None)
  Receive Date: 20110712
  Receipt Date: 20110708
  Transmission Date: 20111222
  Serious: Yes (Other)
  Sender: FDA-Public Use
  Company Number: US-PFIZER INC-2011154344

PATIENT
  Age: 93 Year
  Sex: Male

DRUGS (2)
  1. OXYCODONE [Suspect]
     Dosage: UNK
  2. CELEBREX [Suspect]
     Dosage: UNK

REACTIONS (1)
  - CONFUSIONAL STATE [None]
